FAERS Safety Report 6084538-X (Version None)
Quarter: 2009Q1

REPORT INFORMATION
  Report Type: 
  Country: None (occurrence: None)
  Receive Date: 20090217
  Receipt Date: 20090205
  Transmission Date: 20090719
  Serious: Yes (Hospitalization)
  Sender: FDA-Public Use
  Company Number: 2009AL000805

PATIENT
  Age: 61 Year
  Sex: Female

DRUGS (4)
  1. AMLODIPINE BESYLATE [Suspect]
     Indication: HYPERTENSION
     Dosage: 10 MG;QD;PO
     Route: 048
     Dates: start: 19980101
  2. BENDROFLUMETHIAZIDE [Concomitant]
  3. TAMOXIFEN CITRATE [Concomitant]
  4. KALMS [Concomitant]

REACTIONS (2)
  - APLASTIC ANAEMIA [None]
  - PANCYTOPENIA [None]
